FAERS Safety Report 15042684 (Version 1)
Quarter: 2018Q2

REPORT INFORMATION
  Report Type: Spontaneous
  Country: US (occurrence: US)
  Receive Date: 20180621
  Receipt Date: 20180621
  Transmission Date: 20180711
  Serious: No
  Sender: FDA-Public Use
  Company Number: US-TEVA-2018-US-907540

PATIENT
  Sex: Male

DRUGS (1)
  1. LEVODOPA [Suspect]
     Active Substance: LEVODOPA
     Dosage: CARBIDOPA / LEVODOPA,25 / 100 MG

REACTIONS (1)
  - Drug ineffective [Unknown]
